FAERS Safety Report 5749634-2 (Version None)
Quarter: 2008Q2

REPORT INFORMATION
  Report Type: 
  Country: None (occurrence: None)
  Receive Date: 20080527
  Receipt Date: 20080516
  Transmission Date: 20081010
  Serious: Yes (Hospitalization)
  Sender: FDA-Public Use
  Company Number: US-MERCK-0706USA02013

PATIENT
  Age: 90 Year
  Sex: Female
  Weight: 66 kg

DRUGS (8)
  1. FOSAMAX [Suspect]
     Indication: OSTEOPOROSIS
     Route: 048
     Dates: start: 20050101, end: 20050701
  2. NASAREL [Concomitant]
     Route: 065
  3. COREG [Concomitant]
     Route: 065
  4. LASIX [Concomitant]
     Indication: HYPERTENSION
     Route: 048
     Dates: end: 20050801
  5. POTASSIUM CHLORIDE [Concomitant]
     Route: 048
  6. VICODIN [Concomitant]
     Route: 048
  7. VICODIN [Concomitant]
     Route: 065
  8. MAXZIDE [Concomitant]
     Indication: HYPERTENSION
     Route: 048
     Dates: end: 20050801

REACTIONS (9)
  - AORTIC STENOSIS [None]
  - CHEST PAIN [None]
  - DYSURIA [None]
  - FALL [None]
  - GASTRITIS [None]
  - LACERATION [None]
  - PAIN IN JAW [None]
  - TOOTH INJURY [None]
  - VENTRICULAR TACHYCARDIA [None]
